FAERS Safety Report 24149213 (Version 4)
Quarter: 2024Q3

REPORT INFORMATION
  Report Type: Spontaneous
  Country: US (occurrence: US)
  Receive Date: 20240729
  Receipt Date: 20240920
  Transmission Date: 20241017
  Serious: No
  Sender: BLUEPRINT MEDICINES
  Company Number: US-Blueprint Medicines Corporation-4287

PATIENT
  Sex: Female

DRUGS (1)
  1. AYVAKIT [Suspect]
     Active Substance: AVAPRITINIB
     Indication: Systemic mastocytosis
     Route: 048
     Dates: start: 20240705

REACTIONS (6)
  - Hepatic enzyme increased [Unknown]
  - Nausea [Unknown]
  - Fatigue [Unknown]
  - Peripheral swelling [Unknown]
  - Dizziness [Unknown]
  - Pregnancy [Unknown]
